FAERS Safety Report 24841779 (Version 1)
Quarter: 2025Q1

REPORT INFORMATION
  Report Type: Spontaneous
  Country: US (occurrence: US)
  Receive Date: 20250114
  Receipt Date: 20250114
  Transmission Date: 20250408
  Serious: No
  Sender: TAKEDA
  Company Number: US-TAKEDA-2025TUS003906

PATIENT
  Age: 13 Year
  Sex: Male
  Weight: 45 kg

DRUGS (1)
  1. VYVANSE [Suspect]
     Active Substance: LISDEXAMFETAMINE DIMESYLATE
     Indication: Attention deficit hyperactivity disorder
     Dosage: 50 MILLIGRAM, QD

REACTIONS (3)
  - Insurance issue [Unknown]
  - Product availability issue [Unknown]
  - Inability to afford medication [Unknown]
